FAERS Safety Report 7494699-3 (Version None)
Quarter: 2011Q2

REPORT INFORMATION
  Report Type: 
  Country: None (occurrence: None)
  Receive Date: 20110520
  Receipt Date: 20110516
  Transmission Date: 20111010
  Serious: Yes (Other)
  Sender: FDA-Public Use
  Company Number: US-PFIZER INC-2011105425

PATIENT
  Sex: Male
  Weight: 113 kg

DRUGS (1)
  1. DILANTIN-125 [Suspect]
     Indication: CONVULSION
     Dosage: UNK

REACTIONS (7)
  - COORDINATION ABNORMAL [None]
  - CONFUSIONAL STATE [None]
  - CARDIAC DISORDER [None]
  - DYSPNOEA [None]
  - CONVULSION [None]
  - ANXIETY [None]
  - PANIC ATTACK [None]
